FAERS Safety Report 7781154-6 (Version None)
Quarter: 2011Q3

REPORT INFORMATION
  Report Type: 
  Country: None (occurrence: None)
  Receive Date: 20110927
  Receipt Date: 20110922
  Transmission Date: 20111222
  Serious: Yes (Other)
  Sender: FDA-Public Use
  Company Number: PHHY2011CA77191

PATIENT
  Sex: Female

DRUGS (11)
  1. DIAMICRON [Concomitant]
  2. CALCITE [Concomitant]
  3. ASPIRIN [Concomitant]
  4. ZOLEDRONOC ACID [Suspect]
     Indication: OSTEOPOROSIS
     Dosage: UNK UKN, UNK
     Route: 042
  5. ZOLEDRONOC ACID [Suspect]
     Dosage: UNK UKN, UNK
     Route: 042
  6. LIPITOR [Concomitant]
  7. LASIX [Concomitant]
  8. AMIODARONE HCL [Concomitant]
  9. ANTIDEPRESSANTS [Concomitant]
  10. PANTOPRAZOLE SODIUM [Concomitant]
  11. ATIVAN [Concomitant]

REACTIONS (1)
  - WEIGHT DECREASED [None]
